FAERS Safety Report 5577419-9 (Version None)
Quarter: 2007Q4

REPORT INFORMATION
  Report Type: 
  Country: None (occurrence: None)
  Receive Date: 20071228
  Receipt Date: 20071219
  Transmission Date: 20080405
  Serious: Yes (Other)
  Sender: FDA-Public Use
  Company Number: JP-PFIZER INC-2007107173

PATIENT
  Age: 70 Year
  Sex: Female

DRUGS (5)
  1. EPLERENONE [Suspect]
     Indication: HYPERTENSION
     Dosage: DAILY DOSE:50MG
     Route: 048
  2. ARTIST [Suspect]
     Route: 048
  3. CALBLOCK [Suspect]
     Route: 048
  4. CARDENALIN [Concomitant]
     Route: 048
  5. LASIX [Concomitant]
     Route: 048

REACTIONS (1)
  - BRADYCARDIA [None]
